FAERS Safety Report 4305104-X (Version None)
Quarter: 2004Q1

REPORT INFORMATION
  Report Type: 
  Country: None (occurrence: None)
  Receive Date: 20040223
  Receipt Date: 20040115
  Transmission Date: 20041129
  Serious: No
  Sender: FDA-Public Use
  Company Number: SU-2004-002059

PATIENT
  Age: 56 Year
  Sex: Female
  Weight: 63.5036 kg

DRUGS (13)
  1. BENICAR [Suspect]
     Indication: HYPERTENSION
     Dosage: 20 MG QD PO
     Dates: start: 20031220, end: 20040101
  2. SYNTHROID [Concomitant]
  3. DYAZIDE [Concomitant]
  4. VERAPAMIL [Concomitant]
  5. CELEBREX [Concomitant]
  6. NEXIUM [Concomitant]
  7. ACTONEL [Concomitant]
  8. VITAMIN D [Concomitant]
  9. ALLEGRA [Concomitant]
  10. HUMIBID [Concomitant]
  11. ESGIC [Concomitant]
  12. FENAC [Concomitant]
  13. CA [Concomitant]

REACTIONS (1)
  - RASH [None]
